FAERS Safety Report 11983528 (Version 4)
Quarter: 2016Q2

REPORT INFORMATION
  Report Type: Spontaneous
  Country: CA (occurrence: CA)
  Receive Date: 20160201
  Receipt Date: 20160420
  Transmission Date: 20160815
  Serious: Yes (Death, Hospitalization)
  Sender: FDA-Public Use
  Company Number: CA-BAXALTA-2016BLT000365

PATIENT
  Age: 74 Year
  Sex: Male
  Weight: 64 kg

DRUGS (3)
  1. FEIBA NF [Suspect]
     Active Substance: ANTI-INHIBITOR COAGULANT COMPLEX
     Indication: ACQUIRED HAEMOPHILIA
     Dosage: 4500 IU, EVERY 2 DY, PROPHYLAXIS
     Route: 042
     Dates: start: 201509, end: 201512
  2. FEIBA NF [Suspect]
     Active Substance: ANTI-INHIBITOR COAGULANT COMPLEX
     Indication: HAEMORRHAGE
  3. FEIBA NF [Suspect]
     Active Substance: ANTI-INHIBITOR COAGULANT COMPLEX
     Indication: PROPHYLAXIS
     Dosage: ON DEMAND
     Route: 042
     Dates: start: 20150604, end: 201509

REACTIONS (4)
  - Muscular weakness [Unknown]
  - Traumatic haematoma [Unknown]
  - Death [Fatal]
  - Fall [Unknown]

NARRATIVE: CASE EVENT DATE: 20150602
